FAERS Safety Report 7689685-4 (Version None)
Quarter: 2011Q3

REPORT INFORMATION
  Report Type: 
  Country: None (occurrence: None)
  Receive Date: 20110817
  Receipt Date: 20110812
  Transmission Date: 20111222
  Serious: Yes (Hospitalization, Other)
  Sender: FDA-Public Use
  Company Number: GB-GILEAD-2011-0038431

PATIENT
  Sex: Male

DRUGS (2)
  1. MARAVIROC [Suspect]
     Route: 048
     Dates: start: 20051122
  2. TRUVADA [Suspect]
     Indication: HIV INFECTION
     Route: 048
     Dates: start: 20080602

REACTIONS (1)
  - PULMONARY EMBOLISM [None]
